FAERS Safety Report 4751727-3 (Version None)
Quarter: 2005Q3

REPORT INFORMATION
  Report Type: 
  Country: None (occurrence: None)
  Receive Date: 20050824
  Receipt Date: 20050812
  Transmission Date: 20060218
  Serious: Yes (Hospitalization)
  Sender: FDA-Public Use
  Company Number: US-SANOFI-SYNTHELABO-A03200502494

PATIENT
  Sex: Female
  Weight: 81.2 kg

DRUGS (1)
  1. AMBIEN [Suspect]
     Indication: INSOMNIA
     Route: 048
     Dates: start: 20050201

REACTIONS (12)
  - ANXIETY [None]
  - ASTHENIA [None]
  - BURNING SENSATION [None]
  - CHILLS [None]
  - DEAFNESS [None]
  - DYSPNOEA [None]
  - FIBRIN D DIMER INCREASED [None]
  - FLUSHING [None]
  - NASOPHARYNGITIS [None]
  - PARAESTHESIA [None]
  - TREMOR [None]
  - VOMITING [None]
